FAERS Safety Report 10653572 (Version 1)
Quarter: 2014Q4

REPORT INFORMATION
  Report Type: Spontaneous
  Country: BR (occurrence: BR)
  Receive Date: 20141216
  Receipt Date: 20141216
  Transmission Date: 20150529
  Serious: Yes (Hospitalization)
  Sender: FDA-Public Use
  Company Number: BR-ROCHE-1506824

PATIENT
  Age: 64 Year
  Sex: Female

DRUGS (10)
  1. FRONTAL [Suspect]
     Active Substance: ALPRAZOLAM
     Indication: INSOMNIA
     Route: 065
     Dates: start: 2012
  2. PAROXETINE [Suspect]
     Active Substance: PAROXETINE\PAROXETINE HYDROCHLORIDE
     Indication: PRODUCT USED FOR UNKNOWN INDICATION
     Route: 065
     Dates: start: 20141029
  3. ATENSINA [Concomitant]
     Active Substance: CLONIDINE
     Indication: BLOOD PRESSURE ABNORMAL
     Route: 065
  4. RIVOTRIL [Suspect]
     Active Substance: CLONAZEPAM
     Indication: INSOMNIA
     Route: 065
  5. ZOLPIDEM [Suspect]
     Active Substance: ZOLPIDEM\ZOLPIDEM TARTRATE
     Indication: PRODUCT USED FOR UNKNOWN INDICATION
     Route: 065
     Dates: start: 2012
  6. ALDACTONE (BRAZIL) [Concomitant]
  7. LASIX [Concomitant]
     Active Substance: FUROSEMIDE
  8. NOCTAL (BRAZIL) [Concomitant]
     Route: 065
     Dates: start: 2011
  9. MAREVAN [Concomitant]
     Active Substance: WARFARIN SODIUM
  10. ROSUVASTATIN [Concomitant]
     Active Substance: ROSUVASTATIN
     Indication: BLOOD CHOLESTEROL ABNORMAL

REACTIONS (14)
  - Somnolence [Unknown]
  - Platelet count decreased [Recovered/Resolved]
  - Gastritis [Not Recovered/Not Resolved]
  - Urinary tract infection [Unknown]
  - Feeling abnormal [Not Recovered/Not Resolved]
  - Mitral valve disease [Unknown]
  - Blood potassium decreased [Recovered/Resolved]
  - Malaise [Unknown]
  - Drug dependence [Not Recovered/Not Resolved]
  - Drug ineffective [Unknown]
  - Sleep disorder [Unknown]
  - Psychomotor hyperactivity [Unknown]
  - Blood pressure increased [Unknown]
  - Anaemia [Unknown]

NARRATIVE: CASE EVENT DATE: 20141125
